FAERS Safety Report 5247526-9 (Version None)
Quarter: 2007Q1

REPORT INFORMATION
  Report Type: 
  Country: None (occurrence: None)
  Receive Date: 20070227
  Receipt Date: 20070220
  Transmission Date: 20070707
  Serious: Yes (Hospitalization)
  Sender: FDA-Public Use
  Company Number: US-BAYER-200614696BCC

PATIENT
  Age: 68 Year
  Sex: Male
  Weight: 91 kg

DRUGS (7)
  1. ONE A DAY MENS HEALTH FORMULA [Suspect]
     Indication: VITAMIN SUPPLEMENTATION
     Route: 048
     Dates: start: 20030101, end: 20061110
  2. ASPIRIN [Suspect]
     Indication: HEADACHE
     Dosage: UNIT DOSE: 325 MG
     Route: 048
  3. ASPIRIN [Suspect]
     Dosage: TOTAL DAILY DOSE: 3900 MG  UNIT DOSE: 325 MG
     Route: 048
     Dates: start: 20061107, end: 20061110
  4. ASPIRIN [Suspect]
     Dosage: UNIT DOSE: 325 MG
     Route: 048
  5. ASPIRIN [Suspect]
     Route: 048
  6. FISH OIL [Concomitant]
  7. FOLIC ACID [Concomitant]

REACTIONS (4)
  - DEEP VEIN THROMBOSIS [None]
  - JOINT SWELLING [None]
  - OEDEMA PERIPHERAL [None]
  - PAIN IN EXTREMITY [None]
